FAERS Safety Report 8495327-0 (Version None)
Quarter: 2012Q3

REPORT INFORMATION
  Report Type: 
  Country: None (occurrence: None)
  Receive Date: 20120702
  Receipt Date: 20120702
  Transmission Date: 20120928
  Serious: Yes (Other)
  Sender: FDA-Public Use
  Company Number: None

PATIENT
  Age: 47 Year
  Sex: Female
  Weight: 61.2356 kg

DRUGS (1)
  1. GILENYA [Suspect]
     Indication: MULTIPLE SCLEROSIS
     Dosage: 1, EVERYDAY, PO
     Route: 048
     Dates: start: 20080101

REACTIONS (2)
  - LYMPHOCYTE COUNT DECREASED [None]
  - MOLLUSCUM CONTAGIOSUM [None]
